FAERS Safety Report 10593427 (Version 1)
Quarter: 2014Q4

REPORT INFORMATION
  Report Type: Report from Study
  Country: US (occurrence: US)
  Receive Date: 20141119
  Receipt Date: 20141119
  Transmission Date: 20150529
  Serious: Yes (Hospitalization, Other)
  Sender: FDA-Public Use
  Company Number: US-ASTRAZENECA-2014SE85483

PATIENT
  Age: 19736 Day
  Sex: Male
  Weight: 151 kg

DRUGS (27)
  1. ALDACTONE [Concomitant]
     Active Substance: SPIRONOLACTONE
     Route: 048
  2. ASPIRIN. [Concomitant]
     Active Substance: ASPIRIN
     Route: 048
  3. LIVALO [Concomitant]
     Active Substance: PITAVASTATIN CALCIUM
     Route: 048
  4. PERCOCET [Concomitant]
     Active Substance: ACETAMINOPHEN\OXYCODONE HYDROCHLORIDE
     Dosage: 10-325 MG, ONE TABLET EVERY 4 HOURS PRN
  5. ZETIA [Concomitant]
     Active Substance: EZETIMIBE
     Route: 048
  6. INFLUENZA VACCINE [Concomitant]
     Active Substance: INFLUENZA VIRUS VACCINE
     Dates: start: 2013
  7. OMEPRAZOLE. [Suspect]
     Active Substance: OMEPRAZOLE
     Route: 048
  8. KLOR CON [Concomitant]
     Route: 048
  9. SPIRIVA [Concomitant]
     Active Substance: TIOTROPIUM BROMIDE MONOHYDRATE
  10. TOPROL XL [Suspect]
     Active Substance: METOPROLOL SUCCINATE
     Route: 048
  11. SYMBICORT [Suspect]
     Active Substance: BUDESONIDE\FORMOTEROL FUMARATE DIHYDRATE
     Dosage: 160/4.5 MCG, TWO PUFFS, TWO TIMES A DAY
     Route: 055
  12. OPANA ER [Concomitant]
     Active Substance: OXYMORPHONE HYDROCHLORIDE
     Route: 048
  13. TRICOR [Concomitant]
     Active Substance: FENOFIBRATE
     Route: 048
  14. APIDRA [Concomitant]
     Active Substance: INSULIN GLULISINE
     Dosage: 100 UNIT/ML AS DIRECTED QID
  15. METOLAZONE. [Concomitant]
     Active Substance: METOLAZONE
     Route: 048
  16. NEURONTIN [Concomitant]
     Active Substance: GABAPENTIN
  17. WARFARIN SODIUM. [Concomitant]
     Active Substance: WARFARIN SODIUM
     Route: 048
  18. AMIODARONE HCL [Concomitant]
     Active Substance: AMIODARONE HYDROCHLORIDE
     Route: 048
  19. XOPENEX HFA [Concomitant]
     Active Substance: LEVALBUTEROL TARTRATE
     Dosage: 45 MCG/ACT, TWO PUFFS PRN
  20. CRESTOR [Suspect]
     Active Substance: ROSUVASTATIN CALCIUM
     Route: 048
  21. FUROSEMIDE. [Concomitant]
     Active Substance: FUROSEMIDE
     Route: 048
  22. LANTUS [Concomitant]
     Active Substance: INSULIN GLARGINE
     Dosage: 100 UNIT/ML AS DIRECTED
  23. LANOXIN [Concomitant]
     Active Substance: DIGOXIN
     Route: 048
  24. SYNTHROID [Concomitant]
     Active Substance: LEVOTHYROXINE SODIUM
     Route: 048
  25. TIZANIDINE HCL [Concomitant]
     Active Substance: TIZANIDINE HYDROCHLORIDE
  26. WARFARIN SODIUM. [Concomitant]
     Active Substance: WARFARIN SODIUM
     Route: 048
  27. PNEUMOVAX 23 [Concomitant]
     Active Substance: PNEUMOCOCCAL VACCINE, POLYVALENT 23
     Dates: start: 2013

REACTIONS (36)
  - Ventricular tachycardia [Unknown]
  - Sleep apnoea syndrome [Unknown]
  - Gastrooesophageal reflux disease [Unknown]
  - Dyspnoea [Unknown]
  - Nephrolithiasis [Unknown]
  - Myalgia [Unknown]
  - Spinal cord infarction [Unknown]
  - Urosepsis [Unknown]
  - Exercise tolerance decreased [Unknown]
  - Hypothyroidism [Unknown]
  - Cerebrovascular accident [Unknown]
  - Coronary artery disease [Unknown]
  - Obesity [Unknown]
  - Pneumonia bacterial [Unknown]
  - Atrial flutter [Unknown]
  - Acute abdomen [Unknown]
  - Carotid artery disease [Unknown]
  - Cardiac failure congestive [Unknown]
  - Oedema [Unknown]
  - Asthenia [Unknown]
  - Hyperlipidaemia [Unknown]
  - Diabetes mellitus [Unknown]
  - Drug hypersensitivity [Unknown]
  - Metabolic syndrome [Unknown]
  - Angiopathy [Unknown]
  - Angina pectoris [Unknown]
  - Aortic aneurysm [Unknown]
  - Ischaemic cardiomyopathy [Unknown]
  - Lobar pneumonia [Unknown]
  - Hiatus hernia [Unknown]
  - Cataract [Unknown]
  - Cellulitis [Unknown]
  - Weight increased [Unknown]
  - Hyperhidrosis [Unknown]
  - Barrett^s oesophagus [Unknown]
  - Blood triglycerides abnormal [Unknown]

NARRATIVE: CASE EVENT DATE: 20050621
